FAERS Safety Report 4717345-8 (Version None)
Quarter: 2005Q3

REPORT INFORMATION
  Report Type: 
  Country: None (occurrence: None)
  Receive Date: 20050712
  Receipt Date: 20050426
  Transmission Date: 20060218
  Serious: Yes (Hospitalization)
  Sender: FDA-Public Use
  Company Number: PHEH2005US04571

PATIENT
  Age: 52 Year
  Sex: Male

DRUGS (3)
  1. GLEEVEC [Suspect]
     Indication: GASTROINTESTINAL STROMAL TUMOUR
     Dosage: 400 MG, QD, ORAL; 800 MG, QD, ORAL;  600 MG, QD, ORAL
     Route: 048
     Dates: start: 20031117, end: 20041101
  2. GLEEVEC [Suspect]
     Indication: GASTROINTESTINAL STROMAL TUMOUR
     Dosage: 400 MG, QD, ORAL; 800 MG, QD, ORAL;  600 MG, QD, ORAL
     Route: 048
     Dates: start: 20041101, end: 20050201
  3. GLEEVEC [Suspect]
     Indication: GASTROINTESTINAL STROMAL TUMOUR
     Dosage: 400 MG, QD, ORAL; 800 MG, QD, ORAL;  600 MG, QD, ORAL
     Route: 048
     Dates: start: 20050301

REACTIONS (2)
  - DEPRESSION [None]
  - SUICIDAL IDEATION [None]
